FAERS Safety Report 4556351-3 (Version None)
Quarter: 2005Q1

REPORT INFORMATION
  Report Type: 
  Country: None (occurrence: None)
  Receive Date: 20050104
  Receipt Date: 20041220
  Transmission Date: 20050727
  Serious: Yes (Hospitalization)
  Sender: FDA-Public Use
  Company Number: 2004UW25834

PATIENT
  Age: 81 Year
  Sex: Female

DRUGS (6)
  1. CRESTOR [Suspect]
     Indication: HYPERCHOLESTEROLAEMIA
     Dosage: 10 MG PO
     Route: 048
     Dates: end: 20041210
  2. ACULAR [Concomitant]
  3. ANTIVERT [Concomitant]
  4. DIOVAN [Concomitant]
  5. LORAZEPAM [Concomitant]
  6. DETROL [Concomitant]

REACTIONS (3)
  - DIZZINESS [None]
  - INJURY [None]
  - RHABDOMYOLYSIS [None]
